FAERS Safety Report 6715665-9 (Version None)
Quarter: 2010Q2

REPORT INFORMATION
  Report Type: 
  Country: None (occurrence: None)
  Receive Date: 20100507
  Receipt Date: 20100430
  Transmission Date: 20101027
  Serious: Yes (Hospitalization)
  Sender: FDA-Public Use
  Company Number: US-RB-004931-10

PATIENT
  Sex: Female

DRUGS (2)
  1. SUBOXONE [Suspect]
     Route: 060
     Dates: start: 20100303, end: 20100304
  2. SUBOXONE [Suspect]
     Dates: start: 20100317

REACTIONS (8)
  - ANAEMIA [None]
  - BLOOD TEST ABNORMAL [None]
  - CARBON DIOXIDE DECREASED [None]
  - DRUG WITHDRAWAL SYNDROME [None]
  - DYSARTHRIA [None]
  - FATIGUE [None]
  - PAIN [None]
  - PNEUMONIA [None]
